FAERS Safety Report 5427750-2 (Version None)
Quarter: 2007Q3

REPORT INFORMATION
  Report Type: 
  Country: None (occurrence: None)
  Receive Date: 20070828
  Receipt Date: 20070820
  Transmission Date: 20080115
  Serious: Yes (Other)
  Sender: FDA-Public Use
  Company Number: US-ELI_LILLY_AND_COMPANY-US200708004160

PATIENT
  Age: 35 Year
  Sex: Male

DRUGS (6)
  1. HUMALOG [Suspect]
     Dosage: UNK, AS NEEDED
  2. ZOCOR [Concomitant]
  3. PREVACID [Concomitant]
  4. COREG [Concomitant]
  5. LISINOPRIL [Concomitant]
  6. VITAMIN CAP [Concomitant]

REACTIONS (6)
  - BLINDNESS [None]
  - BLOOD CALCIUM ABNORMAL [None]
  - BLOOD GLUCOSE INCREASED [None]
  - COUGH [None]
  - PANCREATIC INSUFFICIENCY [None]
  - RENAL FAILURE [None]
